FAERS Safety Report 23653955 (Version 2)
Quarter: 2024Q2

REPORT INFORMATION
  Report Type: Spontaneous
  Country: JP (occurrence: JP)
  Receive Date: 20240320
  Receipt Date: 20240405
  Transmission Date: 20240716
  Serious: Yes (Hospitalization, Other)
  Sender: FDA-Public Use
  Company Number: JP-SA-2024SA086108

PATIENT
  Age: 74 Year
  Sex: Male
  Weight: 79 kg

DRUGS (9)
  1. GLIMEPIRIDE [Suspect]
     Active Substance: GLIMEPIRIDE
     Indication: Type 2 diabetes mellitus
     Dosage: 1 MG, QD
     Route: 065
  2. METFORMIN HYDROCHLORIDE [Suspect]
     Active Substance: METFORMIN HYDROCHLORIDE
     Indication: Type 2 diabetes mellitus
     Dosage: 1000 MG, QD
     Route: 065
  3. INSULIN NOS [Suspect]
     Active Substance: INSULIN NOS
     Indication: Type 2 diabetes mellitus
     Dosage: 0.58 UNITS/KG, QD, BASAL-BOLUS INSULIN
     Route: 065
  4. CANAGLIFLOZIN [Suspect]
     Active Substance: CANAGLIFLOZIN
     Indication: Type 2 diabetes mellitus
     Dosage: 100 MG, QD
     Route: 065
  5. DULAGLUTIDE [Suspect]
     Active Substance: DULAGLUTIDE
     Indication: Type 2 diabetes mellitus
     Dosage: 0.75 MG, QW
     Route: 065
  6. CARBOPLATIN [Concomitant]
     Active Substance: CARBOPLATIN
     Indication: Lung squamous cell carcinoma stage III
     Dosage: UNK UNK, QCY
     Route: 065
  7. PACLITAXEL [Concomitant]
     Active Substance: PACLITAXEL
     Indication: Lung squamous cell carcinoma stage III
     Dosage: UNK UNK, QCY
     Route: 065
  8. NIVOLUMAB [Concomitant]
     Active Substance: NIVOLUMAB
     Indication: Lung squamous cell carcinoma stage III
     Dosage: UNK UNK, QCY, FOR MAINTENANCE
     Route: 065
  9. IPILIMUMAB [Concomitant]
     Active Substance: IPILIMUMAB
     Indication: Lung squamous cell carcinoma stage III
     Dosage: UNK UNK, QCY, FOR MAINTENANCE
     Route: 065

REACTIONS (6)
  - Diabetic ketosis [Recovering/Resolving]
  - Pyrexia [Recovering/Resolving]
  - Depressed level of consciousness [Recovering/Resolving]
  - Loss of consciousness [Recovering/Resolving]
  - Treatment noncompliance [Recovering/Resolving]
  - Hypovolaemic shock [Recovering/Resolving]
